FAERS Safety Report 7607050-2 (Version None)
Quarter: 2011Q3

REPORT INFORMATION
  Report Type: 
  Country: None (occurrence: None)
  Receive Date: 20110706
  Receipt Date: 20110627
  Transmission Date: 20111222
  Serious: Yes (Other)
  Sender: FDA-Public Use
  Company Number: ACO_24231_2011

PATIENT
  Age: 68 Year
  Sex: Female
  Weight: 117.9 kg

DRUGS (2)
  1. BACLOFEN [Concomitant]
  2. AMPYRA [Suspect]
     Indication: MULTIPLE SCLEROSIS
     Dosage: 10 MG, BID, ORAL
     Route: 048
     Dates: start: 20110304, end: 20110511

REACTIONS (4)
  - MUSCLE SPASMS [None]
  - INSOMNIA [None]
  - PANIC ATTACK [None]
  - DYSPNOEA [None]
